FAERS Safety Report 24354058 (Version 1)
Quarter: 2024Q3

REPORT INFORMATION
  Report Type: Spontaneous
  Country: US (occurrence: US)
  Receive Date: 20240923
  Receipt Date: 20240923
  Transmission Date: 20241016
  Serious: Yes (Hospitalization)
  Sender: DR REDDYS
  Company Number: None

PATIENT
  Age: 89 Year
  Sex: Male
  Weight: 76.3 kg

DRUGS (3)
  1. HEPARIN [Suspect]
     Active Substance: HEPARIN SODIUM
     Indication: Thrombosis prophylaxis
     Route: 058
  2. HEPARIN [Suspect]
     Active Substance: HEPARIN SODIUM
     Dosage: RESUMED
     Route: 058
  3. CLOPIDOGREL [Concomitant]
     Active Substance: CLOPIDOGREL BISULFATE
     Indication: Mesenteric artery thrombosis

REACTIONS (6)
  - Blood urea increased [Unknown]
  - Blood loss anaemia [Recovering/Resolving]
  - Coagulopathy [Recovered/Resolved]
  - Blood creatinine increased [Unknown]
  - Haematoma muscle [Recovering/Resolving]
  - Platelet count decreased [Unknown]
